FAERS Safety Report 8831337 (Version 2)
Quarter: 2012Q4

REPORT INFORMATION
  Report Type: 
  Country: US (occurrence: US)
  Receive Date: 20121008
  Receipt Date: 20121026
  Transmission Date: 20130627
  Serious: Yes (Hospitalization)
  Sender: FDA-Public Use
  Company Number: US-VERTEX PHARMACEUTICAL INC.-2012-022083

PATIENT
  Age: 30 None
  Sex: Female
  Weight: 61 kg

DRUGS (8)
  1. INCIVEK [Suspect]
     Indication: HEPATITIS C
     Dosage: 750 mg, tid
     Route: 048
     Dates: start: 20120824
  2. COPEGUS [Suspect]
     Indication: HEPATITIS C
     Dosage: 600 mg in AM + 400 mg in PM
     Route: 048
  3. COPEGUS [Suspect]
     Dosage: 400 mg, bid
     Route: 048
     Dates: start: 20120920
  4. PEGASYS [Suspect]
     Indication: HEPATITIS C
     Dosage: 180 ?g, qw
     Route: 058
     Dates: start: 20120824
  5. FLUOXETINE [Concomitant]
  6. LASIX                              /00032601/ [Concomitant]
  7. LISINOPRIL HCTZ [Concomitant]
  8. SPIRONOLACTONE [Concomitant]

REACTIONS (11)
  - Wound infection staphylococcal [Not Recovered/Not Resolved]
  - Dyspnoea [Not Recovered/Not Resolved]
  - Dizziness postural [Not Recovered/Not Resolved]
  - Rectal fissure [Not Recovered/Not Resolved]
  - Fatigue [Not Recovered/Not Resolved]
  - Anaemia [Not Recovered/Not Resolved]
  - Rectal haemorrhage [Not Recovered/Not Resolved]
  - Proctalgia [Not Recovered/Not Resolved]
  - Diarrhoea [Not Recovered/Not Resolved]
  - Vomiting [Not Recovered/Not Resolved]
  - Nausea [Not Recovered/Not Resolved]
